FAERS Safety Report 4955457-4 (Version None)
Quarter: 2006Q1

REPORT INFORMATION
  Report Type: 
  Country: None (occurrence: None)
  Receive Date: 20060328
  Receipt Date: 20050815
  Transmission Date: 20060701
  Serious: Yes (Other)
  Sender: FDA-Public Use
  Company Number: US-GLAXOSMITHKLINE-A0571523A

PATIENT
  Age: 10 Year
  Sex: Male

DRUGS (3)
  1. PAXIL [Suspect]
     Indication: OBSESSIVE-COMPULSIVE DISORDER
     Dosage: 10MG VARIABLE DOSE
     Route: 048
     Dates: start: 20020502, end: 20021001
  2. RISPERDAL [Concomitant]
     Dates: start: 20020801
  3. DEPAKOTE [Concomitant]
     Dates: start: 20020801

REACTIONS (10)
  - ABNORMAL BEHAVIOUR [None]
  - AGGRESSION [None]
  - ANGER [None]
  - DRUG WITHDRAWAL SYNDROME [None]
  - IMPULSIVE BEHAVIOUR [None]
  - INITIAL INSOMNIA [None]
  - MOOD SWINGS [None]
  - PARAESTHESIA [None]
  - SELF MUTILATION [None]
  - SUICIDE ATTEMPT [None]
